FAERS Safety Report 7036174-6 (Version None)
Quarter: 2010Q4

REPORT INFORMATION
  Report Type: 
  Country: None (occurrence: None)
  Receive Date: 20101008
  Receipt Date: 20100714
  Transmission Date: 20110411
  Serious: No
  Sender: FDA-Public Use
  Company Number: US-BRISTOL-MYERS SQUIBB COMPANY-15151988

PATIENT
  Age: 62 Year
  Sex: Male

DRUGS (1)
  1. AVAPRO [Suspect]
     Indication: HYPERTENSION
     Dosage: PACKAGE:BOTTLE
     Route: 048
     Dates: start: 20100527

REACTIONS (1)
  - FEELING ABNORMAL [None]
